FAERS Safety Report 8203018 (Version 7)
Quarter: 2012Q4

REPORT INFORMATION
  Report Type: 
  Country: US (occurrence: US)
  Receive Date: 20111027
  Receipt Date: 20121126
  Transmission Date: 20130627
  Serious: Yes (Hospitalization, Disabling, Other)
  Sender: FDA-Public Use
  Company Number: US-GLAXOSMITHKLINE-A0950674A

PATIENT
  Age: 62 Year
  Sex: Male

DRUGS (1)
  1. AVANDIA [Suspect]
     Indication: DIABETES MELLITUS
     Route: 048
     Dates: start: 200103, end: 20091018

REACTIONS (4)
  - Myocardial infarction [Not Recovered/Not Resolved]
  - Ventricular fibrillation [Unknown]
  - Arteriosclerosis coronary artery [Unknown]
  - Road traffic accident [Unknown]
